FAERS Safety Report 16013454 (Version 1)
Quarter: 2019Q1

REPORT INFORMATION
  Report Type: Spontaneous
  Country: US (occurrence: US)
  Receive Date: 20190131
  Receipt Date: 20190131
  Transmission Date: 20190418
  Serious: No
  Sender: FDA-Public Use
  Company Number: None

PATIENT

DRUGS (1)
  1. PRISMASOL BGK2/3.5 [Suspect]
     Active Substance: ANHYDROUS DEXTROSE\CALCIUM CHLORIDE\LACTIC ACID\MAGNESIUM CHLORIDE\POTASSIUM CHLORIDE\SODIUM BICARBONATE\SODIUM CHLORIDE

REACTIONS (3)
  - Product communication issue [None]
  - Wrong technique in product usage process [None]
  - Product administration error [None]
